FAERS Safety Report 4452029-5 (Version None)
Quarter: 2004Q3

REPORT INFORMATION
  Report Type: 
  Country: None (occurrence: None)
  Receive Date: 20040915
  Receipt Date: 20040915
  Transmission Date: 20050211
  Serious: Yes (Life-Threatening, Hospitalization)
  Sender: FDA-Public Use
  Company Number: None

PATIENT
  Age: 75 Year
  Sex: Female
  Weight: 66.3 kg

DRUGS (6)
  1. HYDROCHLOROTHIAZIDE [Suspect]
     Indication: HYPERTENSION
     Dosage: 25 MG PO DAILY CHRONIC
     Route: 048
  2. LISINOPRIL [Concomitant]
  3. TOPROL-XL [Concomitant]
  4. CATAPRES [Concomitant]
  5. NEXIUM [Concomitant]
  6. DETROL LA [Concomitant]

REACTIONS (3)
  - ASTHENIA [None]
  - BLOOD SODIUM ABNORMAL [None]
  - MOBILITY DECREASED [None]
